FAERS Safety Report 17740899 (Version 2)
Quarter: 2020Q2

REPORT INFORMATION
  Report Type: Report from Study
  Country: IN (occurrence: IN)
  Receive Date: 20200504
  Receipt Date: 20200514
  Transmission Date: 20200714
  Serious: Yes (Other)
  Sender: FDA-Public Use
  Company Number: NVSC2020IN093238

PATIENT
  Age: 69 Year
  Sex: Male
  Weight: 68 kg

DRUGS (4)
  1. APIDRA [Concomitant]
     Active Substance: INSULIN GLULISINE
     Indication: DIABETES MELLITUS
     Dosage: UNK, TID (10 U, 1-1-1)
     Route: 058
  2. ECOSPRIN AV [Concomitant]
     Active Substance: ASPIRIN\ATORVASTATIN
     Indication: COAGULOPATHY
     Dosage: UNK (75)
     Route: 048
  3. GALVUS MET [Suspect]
     Active Substance: METFORMIN HYDROCHLORIDE\VILDAGLIPTIN
     Indication: DIABETES MELLITUS
     Dosage: UNK, QD (PREMEAL) (50/500), SINCE 6 MONTHS
     Route: 048
  4. LANTUS [Concomitant]
     Active Substance: INSULIN GLARGINE
     Indication: DIABETES MELLITUS
     Dosage: UNK, QD (10 U, 0-0-1)
     Route: 058

REACTIONS (6)
  - Gastritis [Unknown]
  - Diabetes mellitus inadequate control [Unknown]
  - Hyperglycaemia [Unknown]
  - Liver injury [Unknown]
  - Weight decreased [Unknown]
  - Insomnia [Unknown]

NARRATIVE: CASE EVENT DATE: 201911
